FAERS Safety Report 6158641-X (Version None)
Quarter: 2009Q2

REPORT INFORMATION
  Report Type: 
  Country: None (occurrence: None)
  Receive Date: 20090415
  Receipt Date: 20090330
  Transmission Date: 20091009
  Serious: Yes (Hospitalization)
  Sender: FDA-Public Use
  Company Number: 2009S1005484

PATIENT
  Age: 72 Year
  Sex: Female

DRUGS (6)
  1. ESOMEPRAZOLE [Suspect]
     Indication: ABDOMINAL DISCOMFORT
     Dosage: DAILY
  2. FAMOTIDINE [Suspect]
     Indication: ABDOMINAL DISCOMFORT
     Dosage: DAILY
  3. GINGER [Suspect]
  4. GINSENG [Suspect]
  5. GINKGO BILOBA [Suspect]
  6. ECHINACEA /01323502/ [Suspect]

REACTIONS (9)
  - AMNESIA [None]
  - ANAEMIA [None]
  - CEREBRAL ATROPHY [None]
  - CONFUSIONAL STATE [None]
  - DEMENTIA [None]
  - GAIT DISTURBANCE [None]
  - HYPOPHAGIA [None]
  - SINUS TACHYCARDIA [None]
  - VITAMIN B12 DEFICIENCY [None]
